FAERS Safety Report 4825402-0 (Version None)
Quarter: 2005Q4

REPORT INFORMATION
  Report Type: 
  Country: None (occurrence: None)
  Receive Date: 20051109
  Receipt Date: 20051027
  Transmission Date: 20060501
  Serious: Yes (Death)
  Sender: FDA-Public Use
  Company Number: 2005-US-00815

PATIENT
  Sex: Male

DRUGS (7)
  1. QVAR 40 [Suspect]
     Dosage: RESPIRATORY (INHALATION)
  2. SALBUTAMOL [Suspect]
     Dosage: RESPIRATORY (INHALATION)
  3. TIOTROPIUM BROMIDE [Suspect]
  4. BENDROFLUMETHIAZIDE [Suspect]
  5. LEKOVIT CA [Suspect]
  6. DOSULEPIN [Concomitant]
  7. SALMETEROL [Concomitant]

REACTIONS (3)
  - CHRONIC OBSTRUCTIVE PULMONARY DISEASE [None]
  - LOWER RESPIRATORY TRACT INFECTION [None]
  - PULMONARY TUBERCULOSIS [None]
